FAERS Safety Report 24848547 (Version 4)
Quarter: 2025Q2

REPORT INFORMATION
  Report Type: Spontaneous
  Country: US (occurrence: US)
  Receive Date: 20250116
  Receipt Date: 20250509
  Transmission Date: 20250716
  Serious: Yes (Other)
  Sender: BRISTOL-MYERS SQUIBB COMPANY
  Company Number: US-BRISTOL-MYERS SQUIBB COMPANY-2025-004839

PATIENT
  Age: 62 Year
  Sex: Female

DRUGS (24)
  1. ORENCIA [Suspect]
     Active Substance: ABATACEPT
     Indication: Rheumatoid arthritis
     Dosage: INJECT 1 MILLILITER (125 MG) BY SUBCUTANEOUS ROUTE ONCE WEEKLY FOR?90 DAYS
     Route: 058
     Dates: start: 20240906
  2. AFINITOR [Concomitant]
     Active Substance: EVEROLIMUS
     Indication: Product used for unknown indication
     Route: 048
  3. ALLEGRA ALLERGY [Concomitant]
     Active Substance: FEXOFENADINE HYDROCHLORIDE
     Indication: Product used for unknown indication
     Dosage: TAKE 1 TABLET (180 MG) BY ORAL ROUTE ONCE DAILY
     Route: 048
  4. AMBIEN [Concomitant]
     Active Substance: ZOLPIDEM TARTRATE
     Indication: Product used for unknown indication
     Dosage: TAKE 0.5-1 PILL PO NIGHTLY
     Route: 048
     Dates: start: 20240306
  5. CELECOXIB [Concomitant]
     Active Substance: CELECOXIB
     Indication: Product used for unknown indication
     Dosage: TAKE 1 CAPSULE (200 MG) BY ORAL ROUTE 2 TIMES PER DAY AS NEEDED
     Route: 048
     Dates: start: 20240306
  6. EVEROLIMUS [Concomitant]
     Active Substance: EVEROLIMUS
     Indication: Product used for unknown indication
  7. FLUTICASONE [Concomitant]
     Active Substance: FLUTICASONE
     Indication: Product used for unknown indication
     Route: 045
  8. KRILL OIL [Concomitant]
     Active Substance: DIETARY SUPPLEMENT\KRILL OIL
     Indication: Product used for unknown indication
     Dosage: TAKE 1 CAPSULE BY ORAL ROUTE DAILY
     Route: 048
  9. MEDROL [Concomitant]
     Active Substance: METHYLPREDNISOLONE
     Indication: Product used for unknown indication
     Route: 048
     Dates: start: 20231213
  10. VITAMINS NOS [Concomitant]
     Active Substance: VITAMINS
     Indication: Product used for unknown indication
  11. PREDNISONE [Concomitant]
     Active Substance: PREDNISONE
     Indication: Rheumatoid arthritis
     Dosage: TAKE 1-3 TABLETS DAILY FOR IMMEDIATE ARTHRITIS CONTROL (USE THE?LOWEST DOSE NEEDED AND STOP WHEN BET
     Dates: start: 20240306
  12. PROVENTIL HFA [Concomitant]
     Active Substance: ALBUTEROL SULFATE
     Indication: Product used for unknown indication
  13. SANDOSTATIN LAR DEPOT [Concomitant]
     Active Substance: OCTREOTIDE ACETATE
     Indication: Product used for unknown indication
     Route: 030
  14. SULFASALAZINE [Concomitant]
     Active Substance: SULFASALAZINE
     Indication: Rheumatoid arthritis
     Dosage: TAKE 1-2 TABLETS BY MOUTH TWICE A DAY
     Route: 048
     Dates: start: 20240306
  15. SULFASALAZINE [Concomitant]
     Active Substance: SULFASALAZINE
     Dosage: TAKE 1-2 TABLETS BY MOUTH TWICE A DAY
     Route: 048
     Dates: start: 20241218
  16. TRAMADOL [Concomitant]
     Active Substance: TRAMADOL
     Indication: Pain
     Dosage: TAKE 1 TABS WITH OTC TYLENOL PO FOUR TIMES DAILY FOR SEVERE PAIN
     Dates: start: 20240920
  17. TRAMADOL [Concomitant]
     Active Substance: TRAMADOL
     Indication: Rheumatoid arthritis
     Dosage: TAKE 1 TABS WITH OTC TYLENOL PO FOUR TIMES DAILY FOR SEVERE PAIN
     Dates: start: 20241219
  18. TRAZODONE [Concomitant]
     Active Substance: TRAZODONE HYDROCHLORIDE
     Indication: Product used for unknown indication
     Dosage: TAKE 1 TABLET BY MOUTH AT BEDTIME
     Dates: start: 20240306
  19. TRELEGY ELLIPTA [Concomitant]
     Active Substance: FLUTICASONE FUROATE\UMECLIDINIUM BROMIDE\VILANTEROL TRIFENATATE
     Indication: Product used for unknown indication
     Dosage: 100-62.5-25 MCG INHALATION BLISTER, INHALE 1 PUFF BY INHALATION ROUTE ONCE DAILY AT THE SAME TIME EA
     Route: 055
  20. TYLENOL EXTRA STRENGTH [Concomitant]
     Active Substance: ACETAMINOPHEN
     Indication: Product used for unknown indication
     Dosage: TAKE 2 TABLETS (1,000 MG) BY ORAL ROUTE EVERY 6 HOURS AS NEEDED
     Route: 048
     Dates: start: 20240306
  21. VITAMIN C [Concomitant]
     Active Substance: ASCORBIC ACID
     Indication: Product used for unknown indication
     Route: 048
  22. VITAMIN D3 [Concomitant]
     Active Substance: CHOLECALCIFEROL
     Indication: Product used for unknown indication
     Route: 048
  23. VITAMIN E [Concomitant]
     Active Substance: .ALPHA.-TOCOPHEROL
     Indication: Product used for unknown indication
     Dosage: TAKE 1 BY ORAL ROUTE DAILY
     Route: 048
  24. ZINC GLUCONATE [Concomitant]
     Active Substance: ZINC GLUCONATE
     Indication: Product used for unknown indication
     Dosage: TAKE 1 TABLET BY ORAL ROUTE DAILY
     Route: 048

REACTIONS (3)
  - Cyst [Unknown]
  - Arthralgia [Recovering/Resolving]
  - Joint stiffness [Recovering/Resolving]
